FAERS Safety Report 7687448-7 (Version None)
Quarter: 2011Q3

REPORT INFORMATION
  Report Type: 
  Country: None (occurrence: None)
  Receive Date: 20110816
  Receipt Date: 20110809
  Transmission Date: 20111222
  Serious: Yes (Other)
  Sender: FDA-Public Use
  Company Number: US-RB-027466-11

PATIENT
  Age: 21 Year
  Sex: Male

DRUGS (3)
  1. SUBOXONE [Suspect]
     Indication: DRUG DEPENDENCE
     Route: 060
     Dates: start: 20080101, end: 20110201
  2. CLONAZEPAM [Suspect]
     Indication: PRODUCT USED FOR UNKNOWN INDICATION
     Dosage: UNKNOWN DOSING DETAILS
     Route: 065
  3. SUBOXONE [Suspect]
     Indication: DRUG DEPENDENCE
     Dosage: SUBLINGUAL FILM
     Route: 065
     Dates: start: 20110201

REACTIONS (20)
  - THERAPEUTIC RESPONSE UNEXPECTED [None]
  - HAEMORRHOIDS [None]
  - PYREXIA [None]
  - DRUG WITHDRAWAL SYNDROME [None]
  - ANXIETY [None]
  - CONSTIPATION [None]
  - WEIGHT INCREASED [None]
  - UNDERDOSE [None]
  - SUICIDE ATTEMPT [None]
  - CONVULSION [None]
  - DRUG DEPENDENCE [None]
  - HEPATIC PAIN [None]
  - INSOMNIA [None]
  - DELUSION [None]
  - HALLUCINATION, AUDITORY [None]
  - MYDRIASIS [None]
  - AGITATION [None]
  - ANGER [None]
  - SUICIDAL IDEATION [None]
  - PAIN IN EXTREMITY [None]
